FAERS Safety Report 23084774 (Version 1)
Quarter: 2023Q4

REPORT INFORMATION
  Report Type: Spontaneous
  Country: FR (occurrence: FR)
  Receive Date: 20231019
  Receipt Date: 20231019
  Transmission Date: 20240109
  Serious: Yes (Hospitalization)
  Sender: FDA-Public Use
  Company Number: FR-SUN PHARMACEUTICAL INDUSTRIES LTD-2023RR-413479

PATIENT
  Age: 4 Month
  Sex: Male
  Weight: 6 kg

DRUGS (2)
  1. CETIRIZINE [Suspect]
     Active Substance: CETIRIZINE HYDROCHLORIDE
     Indication: Product dispensing error
     Dosage: 15 MILLIGRAM 1 DOSE
     Route: 048
     Dates: start: 20230530, end: 20230530
  2. CELESTENE [Concomitant]
     Indication: Product used for unknown indication
     Dosage: DRUG NOT ADMINISTERED
     Route: 065

REACTIONS (2)
  - Product dispensing error [Recovered/Resolved]
  - Somnolence [Recovered/Resolved]

NARRATIVE: CASE EVENT DATE: 20230530
